FAERS Safety Report 6165263-3 (Version None)
Quarter: 2009Q2

REPORT INFORMATION
  Report Type: 
  Country: None (occurrence: None)
  Receive Date: 20090423
  Receipt Date: 20090416
  Transmission Date: 20091009
  Serious: Yes (Hospitalization)
  Sender: FDA-Public Use
  Company Number: A0760965A

PATIENT
  Age: 79 Year
  Sex: Male
  Weight: 70.3 kg

DRUGS (5)
  1. MELPHALAN [Suspect]
     Indication: MULTIPLE MYELOMA
     Dosage: 9MGM2 UNKNOWN
     Route: 048
     Dates: start: 20080829, end: 20081024
  2. VELCADE [Suspect]
     Dosage: 1.3MGM2 UNKNOWN
     Route: 042
     Dates: start: 20080829, end: 20081031
  3. PREDNISONE [Suspect]
     Indication: MULTIPLE MYELOMA
     Dosage: 60MGM2 UNKNOWN
     Route: 048
     Dates: start: 20080829, end: 20081024
  4. LEVOFLOXACIN [Concomitant]
  5. RED BLOOD CELLS [Concomitant]

REACTIONS (4)
  - ASTHENIA [None]
  - COUGH [None]
  - DYSPNOEA [None]
  - PNEUMONIA [None]
